FAERS Safety Report 15525725 (Version 1)
Quarter: 2018Q4

REPORT INFORMATION
  Report Type: Spontaneous
  Country: JP (occurrence: JP)
  Receive Date: 20181018
  Receipt Date: 20181018
  Transmission Date: 20190205
  Serious: Yes (Other)
  Sender: FDA-Public Use
  Company Number: JP-SUN PHARMACEUTICAL INDUSTRIES LTD-2018RR-188138

PATIENT
  Age: 58 Year
  Sex: Female

DRUGS (8)
  1. CAPECITABINE. [Suspect]
     Active Substance: CAPECITABINE
     Indication: METASTASES TO LYMPH NODES
     Dosage: 1500 MG, BID, FOR 2 WEEKS,REPEATED EVERY 3 WEEKS
     Route: 065
     Dates: start: 201108
  2. CAPECITABINE. [Suspect]
     Active Substance: CAPECITABINE
     Indication: DISEASE PROGRESSION
     Dosage: 1200 MG, BID, FOR 2 WEEKS,REPEATED EVERY 4 WEEKS
     Route: 065
     Dates: end: 201405
  3. OXALIPLATIN. [Suspect]
     Active Substance: OXALIPLATIN
     Indication: DISEASE PROGRESSION
     Dosage: 100 MG/M2, ON DAY 1, REPEATED EVERY 4 WEEKS
     Route: 065
     Dates: end: 201205
  4. OXALIPLATIN. [Suspect]
     Active Substance: OXALIPLATIN
     Indication: METASTASES TO LYMPH NODES
     Dosage: 130 MG/M2, ON DAY 1, REPEATED EVERY 3 WEEKS
     Route: 065
     Dates: start: 201108
  5. TS-1 [Suspect]
     Active Substance: GIMERACIL\OTERACIL\TEGAFUR
     Indication: DISEASE PROGRESSION
     Dosage: 60 MG, BID, FOR 2 WEEKS, REPEATED EVERY 3 WEEKS
     Route: 065
  6. OXALIPLATIN. [Suspect]
     Active Substance: OXALIPLATIN
     Dosage: UNK
     Route: 065
  7. CAPECITABINE. [Suspect]
     Active Substance: CAPECITABINE
     Dosage: UNK
     Route: 065
  8. IRINOTECAN [Suspect]
     Active Substance: IRINOTECAN
     Indication: DISEASE PROGRESSION
     Dosage: 150 MG/M2, ON DAY 1
     Route: 065
     Dates: start: 201609

REACTIONS (3)
  - Disease progression [Unknown]
  - Neutropenia [Unknown]
  - Neuropathy peripheral [Recovering/Resolving]

NARRATIVE: CASE EVENT DATE: 2011
